FAERS Safety Report 8965397 (Version 2)
Quarter: 2013Q1

REPORT INFORMATION
  Report Type: Report from Study
  Country: FR (occurrence: FR)
  Receive Date: 20121214
  Receipt Date: 20130214
  Transmission Date: 20140127
  Serious: Yes (Death, Life-Threatening)
  Sender: FDA-Public Use
  Company Number: FR-009507513-1212FRA004136

PATIENT
  Age: 75 Year
  Sex: Male
  Weight: 66 kg

DRUGS (8)
  1. DEXAMETHASONE [Suspect]
     Indication: PLASMA CELL MYELOMA
     Dosage: 40 MG, QW
     Dates: start: 20090730, end: 20100609
  2. DEXAMETHASONE [Suspect]
     Dosage: 40 MG, QW
     Dates: end: 20100609
  3. LENALIDOMIDE [Suspect]
     Indication: PLASMA CELL MYELOMA
     Dosage: 25 MG, QD
     Route: 048
     Dates: start: 20090730, end: 20101213
  4. LENALIDOMIDE [Suspect]
     Dosage: 25 MG, QD
     Route: 048
     Dates: end: 20101213
  5. VELCADE [Suspect]
     Indication: PLASMA CELL MYELOMA
     Dosage: 2.2 MG, QD
     Dates: start: 20120217, end: 20121019
  6. PREDNISONE [Concomitant]
     Indication: PLASMA CELL MYELOMA
     Dosage: 103 MG, QD
     Dates: start: 20120217, end: 20121019
  7. MELPHALAN [Suspect]
     Indication: PLASMA CELL MYELOMA
     Dosage: 18 MG, QD
     Dates: start: 20120217, end: 20121019
  8. ASPIRIN LYSINE [Concomitant]
     Indication: THROMBOSIS PROPHYLAXIS
     Dosage: 100 MG, QD
     Route: 048
     Dates: start: 20090629

REACTIONS (1)
  - Cholangiocarcinoma [Fatal]
